FAERS Safety Report 23471647 (Version 1)
Quarter: 2024Q1

REPORT INFORMATION
  Report Type: Spontaneous
  Country: AR (occurrence: AR)
  Receive Date: 20240202
  Receipt Date: 20240202
  Transmission Date: 20240409
  Serious: Yes (Other)
  Sender: FDA-Public Use
  Company Number: AR-002147023-NVSC2023AR211434

PATIENT
  Sex: Female

DRUGS (6)
  1. TRAVATAN [Suspect]
     Active Substance: TRAVOPROST
     Indication: Glaucoma
     Dosage: UNK, QD (ONCE A DAY) (AT NIGHT) (SOME YEARS AGO)
     Route: 047
  2. TRAVATAN [Suspect]
     Active Substance: TRAVOPROST
     Dosage: 0.4 MILLIGRAM PER MILLILITRE, QD (ONCE DAILY)
     Route: 047
  3. TRAVATAN [Suspect]
     Active Substance: TRAVOPROST
     Dosage: 0.4 MILLIGRAM PER MILLILITRE, QD
     Route: 047
  4. TRAVATAN [Suspect]
     Active Substance: TRAVOPROST
     Dosage: UNK, QD (VIA EYE)
     Route: 047
     Dates: start: 2013
  5. GLAUCOTENSIL TD [Concomitant]
     Indication: Product used for unknown indication
     Dosage: 1 DRP, BID (IN THE MORNING AND AT NIGHT IN BOTH EYES) (DROPS UNSPECIFIED)
     Route: 065
  6. ENALAPRIL MALEATE [Concomitant]
     Active Substance: ENALAPRIL MALEATE
     Indication: Hypertension
     Dosage: 1 DOSAGE FORM, QD (IN THE MORNING)
     Route: 065

REACTIONS (12)
  - Blindness [Unknown]
  - Lens dislocation [Unknown]
  - Visual impairment [Unknown]
  - Drug ineffective [Unknown]
  - Eye pruritus [Recovering/Resolving]
  - Dacryostenosis acquired [Unknown]
  - Scab [Unknown]
  - Ocular hyperaemia [Unknown]
  - Eye swelling [Unknown]
  - Lacrimation increased [Unknown]
  - Expired product administered [Unknown]
  - Eye discharge [Unknown]
